FAERS Safety Report 9746750 (Version 1)
Quarter: 2013Q4

REPORT INFORMATION
  Report Type: Spontaneous
  Country: CH (occurrence: CH)
  Receive Date: 20131211
  Receipt Date: 20131211
  Transmission Date: 20140711
  Serious: Yes (Life-Threatening)
  Sender: FDA-Public Use
  Company Number: CH-JNJFOC-20131205357

PATIENT
  Age: 72 Year
  Sex: Male
  Weight: 69 kg

DRUGS (9)
  1. XARELTO [Suspect]
     Indication: EMBOLISM VENOUS
     Route: 048
     Dates: start: 20131002, end: 20131009
  2. SANDOSTATIN [Concomitant]
     Route: 058
     Dates: start: 20130906
  3. CREON [Concomitant]
     Route: 048
  4. CARBOMER [Concomitant]
     Route: 047
  5. DUODART [Concomitant]
     Route: 048
  6. DAFALGAN [Concomitant]
     Route: 048
  7. PANTOZOL [Concomitant]
     Route: 048
  8. PERENTEROL [Concomitant]
     Route: 048
  9. TOREM [Concomitant]
     Route: 048

REACTIONS (2)
  - Pulmonary embolism [Not Recovered/Not Resolved]
  - Drug ineffective [Not Recovered/Not Resolved]
